FAERS Safety Report 14092502 (Version 1)
Quarter: 2017Q4

REPORT INFORMATION
  Report Type: Spontaneous
  Country: US (occurrence: None)
  Receive Date: 20171016
  Receipt Date: 20171016
  Transmission Date: 20180321
  Serious: Yes (Hospitalization)
  Sender: FDA-Public Use
  Company Number: None

PATIENT
  Age: 57 Year
  Sex: Female

DRUGS (15)
  1. DOCUSATE SOD [Concomitant]
  2. IBUPROFEN. [Concomitant]
     Active Substance: IBUPROFEN
  3. FOLIC ACID. [Concomitant]
     Active Substance: FOLIC ACID
  4. LORAZEPAM. [Concomitant]
     Active Substance: LORAZEPAM
  5. INVEGA SUSTENNA [Suspect]
     Active Substance: PALIPERIDONE PALMITATE
     Indication: SCHIZOAFFECTIVE DISORDER
     Dosage: 234MG Q 4 WEEKS IM
     Route: 030
     Dates: start: 20151210
  6. BENZTROPINE [Concomitant]
     Active Substance: BENZTROPINE
  7. PHENYTEK [Concomitant]
     Active Substance: PHENYTOIN SODIUM
  8. VITAMIN B12 [Concomitant]
     Active Substance: CYANOCOBALAMIN
  9. DIVALPROEX [Concomitant]
     Active Substance: DIVALPROEX SODIUM
  10. PHENYTOIN EX [Concomitant]
  11. VITAMIN D3 [Concomitant]
     Active Substance: CHOLECALCIFEROL
  12. DILANTIN [Concomitant]
     Active Substance: PHENYTOIN
  13. FLUPHENAZINE [Concomitant]
     Active Substance: FLUPHENAZINE
  14. LACTULOSE. [Concomitant]
     Active Substance: LACTULOSE
  15. SENNA [Concomitant]
     Active Substance: SENNA LEAF\SENNOSIDES\SENNOSIDES A AND B

REACTIONS (1)
  - Deep vein thrombosis [None]

NARRATIVE: CASE EVENT DATE: 201709
